FAERS Safety Report 6183739-X (Version None)
Quarter: 2009Q2

REPORT INFORMATION
  Report Type: 
  Country: None (occurrence: None)
  Receive Date: 20090508
  Receipt Date: 20090428
  Transmission Date: 20091009
  Serious: Yes (Hospitalization)
  Sender: FDA-Public Use
  Company Number: FR-PFIZER INC-2009201373

PATIENT
  Age: 56 Year

DRUGS (2)
  1. TRIFLUCAN [Suspect]
     Indication: FUNGAL INFECTION
     Dosage: UNK
     Route: 048
     Dates: start: 20070331
  2. IZILOX [Suspect]
     Indication: OROPHARYNGEAL PAIN
     Dosage: UNK
     Route: 048
     Dates: start: 20070320, end: 20070330

REACTIONS (3)
  - PYREXIA [None]
  - RASH MACULAR [None]
  - RASH MORBILLIFORM [None]
